FAERS Safety Report 8590961-1 (Version None)
Quarter: 2012Q3

REPORT INFORMATION
  Report Type: 
  Country: None (occurrence: None)
  Receive Date: 20120813
  Receipt Date: 20120802
  Transmission Date: 20120928
  Serious: Yes (Other)
  Sender: FDA-Public Use
  Company Number: JP-BAXTER-2012BAX013697

PATIENT
  Age: 85 Year
  Sex: Female
  Weight: 37.2 kg

DRUGS (6)
  1. FEIBA [Suspect]
     Indication: MUSCLE HAEMORRHAGE
     Route: 042
     Dates: start: 20110101
  2. FEIBA [Suspect]
  3. NOVOSEVEN [Concomitant]
     Route: 042
     Dates: start: 20110408, end: 20110408
  4. FEIBA [Suspect]
     Route: 042
     Dates: start: 20110410, end: 20110410
  5. FEIBA [Suspect]
  6. NOVOSEVEN [Concomitant]
     Route: 042
     Dates: start: 20110413, end: 20110413

REACTIONS (1)
  - DRUG INEFFECTIVE [None]
